FAERS Safety Report 14481191 (Version 1)
Quarter: 2018Q1

REPORT INFORMATION
  Report Type: Spontaneous
  Country: US (occurrence: US)
  Receive Date: 20180202
  Receipt Date: 20180202
  Transmission Date: 20180509
  Serious: Yes (Hospitalization, Other)
  Sender: FDA-Public Use
  Company Number: US-IMPAX LABORATORIES, INC-2018-IPXL-00300

PATIENT
  Age: 69 Year
  Sex: Male

DRUGS (1)
  1. PYRIDOSTIGMINE BROMIDE. [Suspect]
     Active Substance: PYRIDOSTIGMINE BROMIDE
     Indication: MYASTHENIA GRAVIS
     Dosage: UNK, DAILY
     Route: 065

REACTIONS (5)
  - Angina pectoris [Recovered/Resolved]
  - Atrial fibrillation [Unknown]
  - Acute kidney injury [Recovered/Resolved]
  - Procedural pain [Recovered/Resolved]
  - Ejection fraction decreased [Unknown]
